FAERS Safety Report 9156655 (Version 1)
Quarter: 2013Q1

REPORT INFORMATION
  Report Type: Spontaneous
  Country: US (occurrence: None)
  Receive Date: 20130208
  Receipt Date: 20130208
  Transmission Date: 20140127
  Serious: Yes (Other)
  Sender: FDA-Public Use
  Company Number: B0864812A

PATIENT
  Age: 7 Year
  Sex: Male

DRUGS (3)
  1. ADVAIR [Suspect]
     Indication: ASTHMA
  2. VERAMYST [Suspect]
     Route: 045
  3. PREDNISOLONE [Suspect]

REACTIONS (4)
  - Adrenal suppression [None]
  - Fatigue [None]
  - Sinusitis [None]
  - Bronchitis [None]
